FAERS Safety Report 8557605-6 (Version None)
Quarter: 2012Q3

REPORT INFORMATION
  Report Type: 
  Country: None (occurrence: None)
  Receive Date: 20120801
  Receipt Date: 20120725
  Transmission Date: 20120928
  Serious: Yes (Hospitalization)
  Sender: FDA-Public Use
  Company Number: JP-B.I. PHARMACEUTICALS,INC./RIDGEFIELD-2012-BP-16529NB

PATIENT
  Age: 85 Year
  Sex: Male

DRUGS (12)
  1. ADALAT CC [Concomitant]
     Route: 065
  2. SIGMART [Concomitant]
     Route: 065
  3. ASPIRIN [Concomitant]
     Dosage: 100 MG
     Route: 065
  4. ISOSORBIDE MONONITRATE [Concomitant]
     Dosage: 40 MG
     Route: 065
  5. PRADAXA [Suspect]
     Indication: ATRIAL FIBRILLATION
     Dosage: 220 MG
     Route: 048
     Dates: start: 20110427, end: 20120725
  6. LASIX [Concomitant]
     Dosage: 20 MG
     Route: 065
  7. LOPRESSOR [Concomitant]
     Route: 065
  8. GASMOTIN [Concomitant]
     Dosage: 15 MG
     Route: 065
  9. TANATRIL [Concomitant]
     Route: 065
  10. PRAVASTATIN [Concomitant]
     Dosage: 10 MG
     Route: 065
  11. DIGOXIN [Concomitant]
     Route: 065
  12. LANSOPRAZOLE [Concomitant]
     Route: 065

REACTIONS (2)
  - DECREASED APPETITE [None]
  - HAEMORRHAGE SUBCUTANEOUS [None]
